FAERS Safety Report 20606373 (Version 1)
Quarter: 2022Q1

REPORT INFORMATION
  Report Type: Spontaneous
  Country: US (occurrence: US)
  Receive Date: 20220317
  Receipt Date: 20220317
  Transmission Date: 20220424
  Serious: No
  Sender: FDA-Public Use
  Company Number: US-PERRIGO-22US001253

PATIENT
  Sex: Female

DRUGS (1)
  1. FAMOTIDINE, CALCIUM CARBONATE, AND MAGNESIUM HYDROXIDE [Suspect]
     Active Substance: CALCIUM CARBONATE\FAMOTIDINE\MAGNESIUM HYDROXIDE
     Indication: Product used for unknown indication
     Dosage: UNKNOWN, THREE TIMES
     Route: 048
     Dates: start: 202111, end: 202201

REACTIONS (1)
  - Abdominal discomfort [Unknown]

NARRATIVE: CASE EVENT DATE: 20211101
